FAERS Safety Report 14871706 (Version 3)
Quarter: 2018Q3

REPORT INFORMATION
  Report Type: Report from Study
  Country: US (occurrence: US)
  Receive Date: 20180509
  Receipt Date: 20180807
  Transmission Date: 20181010
  Serious: Yes (Hospitalization)
  Sender: FDA-Public Use
  Company Number: US-ACTELION-A-NJ2018-171776

PATIENT
  Age: 19 Year
  Sex: Female

DRUGS (1)
  1. TRACLEER [Suspect]
     Active Substance: BOSENTAN
     Indication: PULMONARY HYPERTENSION
     Dosage: 125 MG, BID
     Route: 048
     Dates: start: 20180313, end: 20180727

REACTIONS (7)
  - Nausea [Unknown]
  - Unevaluable event [Unknown]
  - Headache [Unknown]
  - Vomiting [Unknown]
  - Abdominal pain [Unknown]
  - Systemic lupus erythematosus [Unknown]
  - Therapy non-responder [Unknown]

NARRATIVE: CASE EVENT DATE: 20180319
